FAERS Safety Report 6227556-0 (Version None)
Quarter: 2009Q2

REPORT INFORMATION
  Report Type: 
  Country: None (occurrence: None)
  Receive Date: 20090612
  Receipt Date: 20090605
  Transmission Date: 20091009
  Serious: Yes (Other)
  Sender: FDA-Public Use
  Company Number: US-BAYER-200911753BCC

PATIENT
  Age: 18 Year
  Sex: Male
  Weight: 77 kg

DRUGS (2)
  1. ALEVE [Suspect]
     Indication: DRUG USE FOR UNKNOWN INDICATION
     Dosage: CONSUMER TOOK 20 TO 21 TABLETS
     Route: 048
     Dates: start: 20090605
  2. PERCOCET [Concomitant]
     Indication: PAIN
     Dosage: CONSUMER WAS RECENTLY ON PERCOCET BUT PRESCRIPTION RAN OUT
     Route: 065

REACTIONS (1)
  - NO ADVERSE EVENT [None]
